FAERS Safety Report 12271475 (Version 2)
Quarter: 2016Q2

REPORT INFORMATION
  Report Type: Report from Study
  Country: US (occurrence: US)
  Receive Date: 20160415
  Receipt Date: 20160511
  Transmission Date: 20160815
  Serious: Yes (Hospitalization)
  Sender: FDA-Public Use
  Company Number: US-ACTELION-A-US2016-134346

PATIENT
  Age: 89 Year
  Sex: Female

DRUGS (2)
  1. REVATIO [Concomitant]
     Active Substance: SILDENAFIL CITRATE
  2. MACITENTAN [Suspect]
     Active Substance: MACITENTAN
     Indication: PULMONARY ARTERIAL HYPERTENSION
     Dosage: 10 MG, QD
     Route: 048
     Dates: start: 20150910

REACTIONS (11)
  - Cystitis [Unknown]
  - Urinary tract infection [Unknown]
  - Pyrexia [Unknown]
  - Rhinorrhoea [Unknown]
  - Clavicle fracture [Unknown]
  - Decreased appetite [Unknown]
  - Loss of consciousness [Unknown]
  - Cough [Unknown]
  - Asthenia [Unknown]
  - Fall [Unknown]
  - Influenza [Unknown]
